FAERS Safety Report 9783427 (Version 1)
Quarter: 2013Q4

REPORT INFORMATION
  Report Type: Report from Study
  Country: BR (occurrence: BR)
  Receive Date: 20131226
  Receipt Date: 20131226
  Transmission Date: 20140711
  Serious: Yes (Death, Other)
  Sender: FDA-Public Use
  Company Number: PHHY2013BR151835

PATIENT
  Sex: Male

DRUGS (3)
  1. FORASEQ [Suspect]
     Indication: DYSPNOEA
     Dosage: 2 DF, Q12H
     Route: 055
  2. FORASEQ [Suspect]
     Indication: LARYNGEAL CANCER
  3. FORASEQ [Suspect]
     Indication: OFF LABEL USE

REACTIONS (1)
  - Respiratory arrest [Fatal]
